FAERS Safety Report 9381051 (Version 1)
Quarter: 2013Q3

REPORT INFORMATION
  Report Type: Spontaneous
  Country: US (occurrence: US)
  Receive Date: 20130703
  Receipt Date: 20130703
  Transmission Date: 20140515
  Serious: No
  Sender: FDA-Public Use
  Company Number: US-BIOGENIDEC-2013BI058779

PATIENT
  Age: 47 Year
  Sex: Female

DRUGS (2)
  1. TYSABRI [Suspect]
     Indication: MULTIPLE SCLEROSIS
     Route: 042
     Dates: start: 20130122
  2. CRANBERRY PILLS [Concomitant]
     Indication: PROPHYLAXIS URINARY TRACT INFECTION
     Dates: start: 2013

REACTIONS (3)
  - Lymphadenopathy [Recovered/Resolved]
  - Urinary tract infection [Recovered/Resolved]
  - Nasopharyngitis [Recovered/Resolved]
